FAERS Safety Report 14195310 (Version 1)
Quarter: 2017Q4

REPORT INFORMATION
  Report Type: Spontaneous
  Country: CO (occurrence: CO)
  Receive Date: 20171116
  Receipt Date: 20171116
  Transmission Date: 20180321
  Serious: Yes (Other)
  Sender: FDA-Public Use
  Company Number: CO-BIOMARINAP-CO-2017-116110

PATIENT
  Age: 23 Year
  Sex: Male
  Weight: 28.5 kg

DRUGS (1)
  1. VIMIZIM [Suspect]
     Active Substance: ELOSULFASE ALFA
     Indication: MUCOPOLYSACCHARIDOSIS IV
     Dosage: UNK, QW
     Route: 065

REACTIONS (3)
  - Dyspnoea [Recovering/Resolving]
  - Palpitations [Recovering/Resolving]
  - Cyanosis [Recovering/Resolving]
